FAERS Safety Report 5708155-3 (Version None)
Quarter: 2008Q2

REPORT INFORMATION
  Report Type: 
  Country: None (occurrence: None)
  Receive Date: 20080417
  Receipt Date: 20080415
  Transmission Date: 20081010
  Serious: Yes (Hospitalization)
  Sender: FDA-Public Use
  Company Number: B0512142A

PATIENT
  Age: 80 Year
  Sex: Male
  Weight: 46.1 kg

DRUGS (4)
  1. ZEFIX [Suspect]
     Indication: HEPATITIS B
     Dosage: 100MG PER DAY
     Route: 048
     Dates: start: 20071201
  2. LACTULOSE [Concomitant]
     Indication: HEPATITIS B
     Dosage: 10ML THREE TIMES PER DAY
     Route: 048
  3. ALDACTONE [Concomitant]
     Indication: HEPATITIS B
     Dosage: 25MG PER DAY
     Route: 048
  4. NOVORAPID [Concomitant]
     Indication: TYPE 2 DIABETES MELLITUS
     Route: 058

REACTIONS (27)
  - ALANINE AMINOTRANSFERASE INCREASED [None]
  - AMNESIA [None]
  - ASPARTATE AMINOTRANSFERASE INCREASED [None]
  - BLOOD ALBUMIN DECREASED [None]
  - BLOOD ALKALINE PHOSPHATASE INCREASED [None]
  - BLOOD CHOLINESTERASE DECREASED [None]
  - BLOOD CREATINE PHOSPHOKINASE DECREASED [None]
  - BLOOD CREATININE INCREASED [None]
  - BLOOD GLUCOSE INCREASED [None]
  - BLOOD LACTATE DEHYDROGENASE INCREASED [None]
  - BLOOD POTASSIUM INCREASED [None]
  - BLOOD SODIUM DECREASED [None]
  - BLOOD UREA INCREASED [None]
  - COMA HEPATIC [None]
  - CONVULSION [None]
  - EYE ROLLING [None]
  - FALL [None]
  - GAMMA-GLUTAMYLTRANSFERASE INCREASED [None]
  - HAEMATOCRIT DECREASED [None]
  - HALLUCINATION [None]
  - HYPOGLYCAEMIA [None]
  - HYPOTENSION [None]
  - LOSS OF CONSCIOUSNESS [None]
  - MEAN CELL HAEMOGLOBIN INCREASED [None]
  - MEAN CELL VOLUME INCREASED [None]
  - MUSCULOSKELETAL STIFFNESS [None]
  - RED BLOOD CELL COUNT DECREASED [None]
